FAERS Safety Report 6820794 (Version 17)
Quarter: 2013Q3

REPORT INFORMATION
  Report Type: Spontaneous
  Country: US (occurrence: US)
  Receive Date: 20081125
  Receipt Date: 20130827
  Transmission Date: 20140515
  Serious: Yes (Other)
  Sender: FDA-Public Use
  Company Number: PHEH2008US10230

PATIENT
  Age: 68 Year
  Sex: Female
  Weight: 67.12 kg

DRUGS (37)
  1. ZOMETA [Suspect]
     Dates: end: 200604
  2. AREDIA [Suspect]
  3. ALKERAN [Concomitant]
  4. PREDNISONE [Concomitant]
  5. COZAAR [Concomitant]
  6. ATENOLOL [Concomitant]
  7. ZOCOR ^MERCK^ [Concomitant]
  8. ACIPHEX [Concomitant]
  9. FOSAMAX [Concomitant]
  10. ACTONEL [Concomitant]
  11. FAMVIR                                  /NET/ [Concomitant]
     Dosage: UNK
     Dates: start: 200509
  12. PEPCID [Concomitant]
  13. LEVAQUIN [Concomitant]
  14. LIPITOR                                 /NET/ [Concomitant]
  15. THALIDOMIDE [Concomitant]
  16. DECADRON                                /CAN/ [Concomitant]
  17. AMBIEN [Concomitant]
  18. XANAX [Concomitant]
  19. NORVASC                                 /DEN/ [Concomitant]
  20. PRILOSEC [Concomitant]
  21. ASA [Concomitant]
  22. ZOVIRAX [Concomitant]
  23. TRAMADOL [Concomitant]
  24. LYRICA [Concomitant]
  25. LIDODERM [Concomitant]
  26. HYDROCHLOROTHIAZIDE [Concomitant]
  27. CALCIUM WITH VITAMIN D [Concomitant]
  28. VITAMIN C [Concomitant]
  29. VITAMIN B [Concomitant]
  30. MOBIC [Concomitant]
  31. FLEXERIL [Concomitant]
  32. DARVOCET-N [Concomitant]
  33. MEDROL [Concomitant]
  34. NAPROSYN [Concomitant]
  35. NEURONTIN [Concomitant]
  36. CELEBREX [Concomitant]
  37. MODURETIC ^MSD^ [Concomitant]

REACTIONS (116)
  - Cholecystitis [Unknown]
  - Herpes zoster [Unknown]
  - Rib fracture [Unknown]
  - Paraproteinaemia [Unknown]
  - Rotator cuff syndrome [Unknown]
  - Cataract [Unknown]
  - Ulcerative keratitis [Unknown]
  - Upper respiratory tract infection [Unknown]
  - Rhinorrhoea [Unknown]
  - Bronchitis [Unknown]
  - Cough [Unknown]
  - Gastrointestinal haemorrhage [Unknown]
  - Lumbar radiculopathy [Unknown]
  - Psoriasis [Unknown]
  - Sciatica [Unknown]
  - Epicondylitis [Unknown]
  - Peptic ulcer [Unknown]
  - Osteonecrosis of jaw [Unknown]
  - Pain in jaw [Unknown]
  - Loose tooth [Unknown]
  - Tonsillar disorder [Unknown]
  - Tooth disorder [Unknown]
  - Metastatic neoplasm [Unknown]
  - Gastrooesophageal reflux disease [Unknown]
  - Hyperlipidaemia [Unknown]
  - Osteoporosis [Unknown]
  - Osteopenia [Unknown]
  - Hypertension [Unknown]
  - Arthralgia [Unknown]
  - Scoliosis [Unknown]
  - Bone loss [Unknown]
  - Myopathy [Unknown]
  - Anxiety [Unknown]
  - Neuropathy peripheral [Unknown]
  - Eye pain [Unknown]
  - Headache [Unknown]
  - Pain in extremity [Unknown]
  - Diarrhoea [Unknown]
  - Heart rate increased [Unknown]
  - Back pain [Unknown]
  - Neck pain [Unknown]
  - Hypoaesthesia [Unknown]
  - Myalgia [Unknown]
  - Musculoskeletal pain [Recovering/Resolving]
  - Aortic stenosis [Unknown]
  - Mitral valve calcification [Unknown]
  - Mitral valve incompetence [Unknown]
  - Tricuspid valve incompetence [Unknown]
  - Aortic arteriosclerosis [Unknown]
  - Intervertebral disc degeneration [Unknown]
  - Spinal osteoarthritis [Unknown]
  - Hiatus hernia [Unknown]
  - Anxiety disorder [Unknown]
  - Sacroiliitis [Unknown]
  - Spinal column stenosis [Unknown]
  - Arthropathy [Unknown]
  - Carpal tunnel syndrome [Unknown]
  - Cubital tunnel syndrome [Unknown]
  - Polymyalgia rheumatica [Unknown]
  - Aortic valve incompetence [Unknown]
  - Pulmonary hypertension [Unknown]
  - Post herpetic neuralgia [Unknown]
  - Tendon injury [Unknown]
  - Stomatitis [Unknown]
  - Tooth infection [Unknown]
  - Tooth fracture [Unknown]
  - Osteomyelitis [Unknown]
  - Excessive granulation tissue [Unknown]
  - Primary sequestrum [Unknown]
  - Purulent discharge [Unknown]
  - Tenderness [Unknown]
  - Injection site pain [Unknown]
  - Musculoskeletal stiffness [Unknown]
  - Oedema [Unknown]
  - Bursitis [Unknown]
  - Joint effusion [Unknown]
  - Synovitis [Unknown]
  - Plasmacytoma [Unknown]
  - Chest pain [Unknown]
  - Rash [Unknown]
  - Arteriosclerosis coronary artery [Unknown]
  - Aortic calcification [Unknown]
  - Renal cyst [Unknown]
  - Osteolysis [Unknown]
  - Spinal deformity [Unknown]
  - Intervertebral disc space narrowing [Unknown]
  - Vertebral foraminal stenosis [Unknown]
  - Intervertebral disc protrusion [Unknown]
  - Diverticulum [Unknown]
  - Facet joint syndrome [Unknown]
  - Spondylolysis [Unknown]
  - Intervertebral disc compression [Unknown]
  - Spinal cord disorder [Unknown]
  - Exostosis [Unknown]
  - Forearm fracture [Unknown]
  - Bone lesion [Unknown]
  - Bone deformity [Unknown]
  - Radius fracture [Recovering/Resolving]
  - Urinary tract infection [Unknown]
  - Paraesthesia [Unknown]
  - Burning sensation [Unknown]
  - Bone pain [Unknown]
  - Nasal congestion [Unknown]
  - Age-related macular degeneration [Unknown]
  - Lacrimation decreased [Unknown]
  - Fatigue [Unknown]
  - Malaise [Unknown]
  - Pathological fracture [Recovering/Resolving]
  - Bone callus excessive [Unknown]
  - Breast calcifications [Unknown]
  - Synovial cyst [Unknown]
  - Left ventricular hypertrophy [Unknown]
  - Ileus [Unknown]
  - Intermittent claudication [Unknown]
  - Femoral artery occlusion [Unknown]
  - Peripheral vascular disorder [Unknown]
